FAERS Safety Report 12169504 (Version 3)
Quarter: 2017Q2

REPORT INFORMATION
  Report Type: Spontaneous
  Country: SE (occurrence: SE)
  Receive Date: 20160310
  Receipt Date: 20170531
  Transmission Date: 20170830
  Serious: Yes (Other)
  Sender: FDA-Public Use
  Company Number: SE-ALLERGAN-1637915US

PATIENT
  Age: 29 Year
  Sex: Female
  Weight: 71 kg

DRUGS (4)
  1. SAROTEN [Suspect]
     Active Substance: AMITRIPTYLINE
     Indication: NERVE INJURY
     Dosage: UNK
     Dates: start: 201505
  2. LEVAXIN [Concomitant]
     Active Substance: LEVOTHYROXINE SODIUM
     Indication: HYPOTHYROIDISM
  3. BOTOX [Suspect]
     Active Substance: ONABOTULINUMTOXINA
     Indication: NERVE INJURY
     Dosage: UNK, SINGLE
     Route: 030
     Dates: start: 201509, end: 201509
  4. VERSATIS 5 % MEDICINSKT PL?STER [Suspect]
     Active Substance: LIDOCAINE
     Indication: NERVE INJURY
     Dosage: UNK UNK, QHS
     Route: 062
     Dates: start: 201505

REACTIONS (2)
  - Acne [Recovering/Resolving]
  - Weight increased [Recovering/Resolving]

NARRATIVE: CASE EVENT DATE: 20150901
